FAERS Safety Report 12799436 (Version 1)
Quarter: 2016Q3

REPORT INFORMATION
  Report Type: Spontaneous
  Country: FR (occurrence: FR)
  Receive Date: 20160930
  Receipt Date: 20160930
  Transmission Date: 20161109
  Serious: Yes (Hospitalization, Other)
  Sender: FDA-Public Use
  Company Number: FR-ASTRAZENECA-2016SF02757

PATIENT
  Age: 25570 Day
  Sex: Male

DRUGS (10)
  1. FLUCONAZOLE. [Concomitant]
     Active Substance: FLUCONAZOLE
     Route: 048
     Dates: start: 20160814, end: 20160901
  2. TAMSULOSINE [Concomitant]
     Active Substance: TAMSULOSIN HYDROCHLORIDE
  3. AUGMENTIN [Concomitant]
     Active Substance: AMOXICILLIN\CLAVULANATE POTASSIUM
  4. INEXIUM [Suspect]
     Active Substance: ESOMEPRAZOLE
     Indication: FISTULA OF SMALL INTESTINE
     Route: 040
     Dates: start: 20160716, end: 20160825
  5. GANFORT [Concomitant]
     Active Substance: BIMATOPROST\TIMOLOL
     Route: 047
  6. TAZOCILLINE [Suspect]
     Active Substance: PIPERACILLIN SODIUM\TAZOBACTAM SODIUM
     Indication: ENTEROCOCCAL INFECTION
     Dosage: 4 G / 500 MG, 1 DF, EVERY EIGHT HOURS
     Route: 040
     Dates: start: 20160720, end: 20160822
  7. FLUCONAZOLE. [Concomitant]
     Active Substance: FLUCONAZOLE
     Route: 040
     Dates: start: 20160803, end: 20160814
  8. AMIKACINE [Concomitant]
     Active Substance: AMIKACIN
     Dates: start: 20160719, end: 20160722
  9. VESICARE [Concomitant]
     Active Substance: SOLIFENACIN SUCCINATE
  10. VANCOMYCINE [Suspect]
     Active Substance: VANCOMYCIN
     Indication: ENTEROCOCCAL INFECTION
     Dosage: MYLAN
     Route: 040
     Dates: start: 20160722, end: 20160822

REACTIONS (7)
  - Peritonitis [Unknown]
  - Thrombophlebitis [Unknown]
  - Drug reaction with eosinophilia and systemic symptoms [Recovered/Resolved]
  - Enterococcal infection [Unknown]
  - Metastases to peritoneum [Unknown]
  - Abdominal abscess [Unknown]
  - Candida infection [Unknown]

NARRATIVE: CASE EVENT DATE: 20160719
